FAERS Safety Report 7209241-1 (Version None)
Quarter: 2011Q1

REPORT INFORMATION
  Report Type: 
  Country: None (occurrence: None)
  Receive Date: 20110104
  Receipt Date: 20101228
  Transmission Date: 20110831
  Serious: Yes (Hospitalization)
  Sender: FDA-Public Use
  Company Number: A0901685A

PATIENT
  Age: 48 Year
  Sex: Male

DRUGS (8)
  1. DILANTIN [Concomitant]
  2. CLONAZEPAM [Concomitant]
  3. ZANTAC [Concomitant]
  4. AVANDIA [Suspect]
     Dosage: 8MG TWICE PER DAY
     Route: 048
     Dates: end: 20100401
  5. ZOLOFT [Concomitant]
  6. GLIPIZIDE [Concomitant]
  7. GLUCOPHAGE [Concomitant]
  8. TRIAMTERENE [Concomitant]

REACTIONS (2)
  - CARDIAC DISORDER [None]
  - HEARING IMPAIRED [None]
